FAERS Safety Report 13854233 (Version 1)
Quarter: 2017Q3

REPORT INFORMATION
  Report Type: Report from Study
  Country: US (occurrence: US)
  Receive Date: 20170809
  Receipt Date: 20170809
  Transmission Date: 20171127
  Serious: Yes (Other)
  Sender: FDA-Public Use
  Company Number: US-GILEAD-2017-0287395

PATIENT
  Age: 40 Year
  Sex: Female

DRUGS (4)
  1. AMBRISENTAN [Suspect]
     Active Substance: AMBRISENTAN
     Indication: PRODUCT USED FOR UNKNOWN INDICATION
     Dosage: 10 MG, QD
     Route: 065
  2. UPTRAVI [Concomitant]
     Active Substance: SELEXIPAG
  3. ADEMPAS [Concomitant]
     Active Substance: RIOCIGUAT
  4. WARFARIN [Concomitant]
     Active Substance: WARFARIN

REACTIONS (9)
  - Loss of consciousness [Unknown]
  - Bladder prolapse [Unknown]
  - Anal prolapse [Unknown]
  - Dyspnoea [Unknown]
  - Head injury [Unknown]
  - Heart rate decreased [Unknown]
  - Abdominal distension [Not Recovered/Not Resolved]
  - Fall [Unknown]
  - Diaphragmatic disorder [Not Recovered/Not Resolved]

NARRATIVE: CASE EVENT DATE: 20170724
